FAERS Safety Report 23330123 (Version 1)
Quarter: 2023Q4

REPORT INFORMATION
  Report Type: Report from Study
  Country: BR (occurrence: BR)
  Receive Date: 20231222
  Receipt Date: 20231222
  Transmission Date: 20240110
  Serious: Yes (Hospitalization, Other)
  Sender: FDA-Public Use
  Company Number: BR-CELLTRION INC.-2023BR024280

PATIENT

DRUGS (4)
  1. INFLIXIMAB [Suspect]
     Active Substance: INFLIXIMAB
     Indication: Crohn^s disease
     Dosage: 2 AMPOULES EVERY 8 WEEKS
     Route: 042
     Dates: start: 20221109
  2. INFLIXIMAB [Suspect]
     Active Substance: INFLIXIMAB
     Dosage: 2 AMPOULES EVERY 8 WEEKS
     Route: 042
     Dates: start: 20231014
  3. PANTOPRAZOLE [Concomitant]
     Active Substance: PANTOPRAZOLE
  4. DIMETHICONE\METOCLOPRAMIDE\PEPSIN [Concomitant]
     Active Substance: DIMETHICONE\METOCLOPRAMIDE\PEPSIN

REACTIONS (8)
  - Surgery [Unknown]
  - Gastrointestinal neoplasm [Unknown]
  - Postoperative wound infection [Unknown]
  - Procedural pain [Recovering/Resolving]
  - Dehydration [Unknown]
  - Malnutrition [Unknown]
  - Diarrhoea [Unknown]
  - Intentional dose omission [Unknown]

NARRATIVE: CASE EVENT DATE: 20231111
